FAERS Safety Report 5476928-0 (Version None)
Quarter: 2007Q4

REPORT INFORMATION
  Report Type: 
  Country: None (occurrence: None)
  Receive Date: 20071004
  Receipt Date: 20070928
  Transmission Date: 20080405
  Serious: Yes (Disabling)
  Sender: FDA-Public Use
  Company Number: BE-ASTRAZENECA-2007AC01774

PATIENT
  Age: 747 Month
  Sex: Male

DRUGS (3)
  1. CRESTOR [Suspect]
     Indication: DYSLIPIDAEMIA
     Route: 048
     Dates: start: 20061201, end: 20070801
  2. PERINDOPRIL ERBUMINE [Concomitant]
     Indication: CORONARY ARTERY DISEASE
     Route: 048
     Dates: start: 20061201
  3. AAS [Concomitant]
     Route: 048
     Dates: start: 20061201

REACTIONS (3)
  - ASTHENIA [None]
  - MUSCLE CONTRACTIONS INVOLUNTARY [None]
  - MUSCLE SPASMS [None]
